FAERS Safety Report 10585557 (Version 2)
Quarter: 2014Q4

REPORT INFORMATION
  Report Type: Spontaneous
  Country: JP (occurrence: JP)
  Receive Date: 20141114
  Receipt Date: 20141114
  Transmission Date: 20150529
  Serious: Yes (Hospitalization)
  Sender: FDA-Public Use
  Company Number: JP-GLAXOSMITHKLINE-JP2014JPN020121

PATIENT
  Age: 66 Year
  Sex: Female

DRUGS (7)
  1. OLMETEC [Concomitant]
     Active Substance: OLMESARTAN MEDOXOMIL
     Route: 048
  2. AMLODIPINE [Concomitant]
     Active Substance: AMLODIPINE BESYLATE
  3. ZOLPIDEM TARTRATE. [Concomitant]
     Active Substance: ZOLPIDEM TARTRATE
  4. TEPRENONE [Concomitant]
     Active Substance: TEPRENONE
     Route: 048
  5. GW685698 + GW642444 [Suspect]
     Active Substance: FLUTICASONE FUROATE\VILANTEROL TRIFENATATE
     Dosage: 100 ?G, BID
     Route: 055
  6. CRAVIT [Concomitant]
     Active Substance: LEVOFLOXACIN
  7. THEOPHYLLINE [Concomitant]
     Active Substance: THEOPHYLLINE ANHYDROUS

REACTIONS (2)
  - Drug dispensing error [Unknown]
  - Tachycardia [Recovering/Resolving]

NARRATIVE: CASE EVENT DATE: 20141010
